FAERS Safety Report 26150061 (Version 1)
Quarter: 2025Q4

REPORT INFORMATION
  Report Type: Spontaneous
  Country: EU (occurrence: EU)
  Receive Date: 20251212
  Receipt Date: 20251212
  Transmission Date: 20260118
  Serious: Yes (Life-Threatening)
  Sender: AMGEN
  Company Number: EU-Accord-486808

PATIENT
  Age: 65 Year
  Sex: Male

DRUGS (1)
  1. FILGRASTIM [Suspect]
     Active Substance: FILGRASTIM
     Indication: Neutropenia
     Dosage: STRENGTH: 48 MU/ 0.5 MLFREQUENCY: ONCE DAILY, PRE FILLED SYRINGE
     Route: 058
     Dates: start: 20250406, end: 20250408

REACTIONS (4)
  - Lethargy [Recovered/Resolved]
  - Fear of death [Recovered/Resolved]
  - Asthenia [Recovered/Resolved]
  - Fatigue [Unknown]

NARRATIVE: CASE EVENT DATE: 20250401
